FAERS Safety Report 17679675 (Version 1)
Quarter: 2020Q2

REPORT INFORMATION
  Report Type: Spontaneous
  Country: US (occurrence: US)
  Receive Date: 20200417
  Receipt Date: 20200417
  Transmission Date: 20200714
  Serious: No
  Sender: FDA-Public Use
  Company Number: None

PATIENT
  Age: 74 Year
  Sex: Male
  Weight: 89.1 kg

DRUGS (2)
  1. ZYTIGA 250MG, ORAL [Concomitant]
     Dates: start: 20170208, end: 20180904
  2. ABIRATERONE. [Suspect]
     Active Substance: ABIRATERONE ACETATE
     Indication: PROSTATE CANCER
     Route: 048
     Dates: start: 20180904, end: 20200416

REACTIONS (1)
  - Disease progression [None]

NARRATIVE: CASE EVENT DATE: 20200416
